FAERS Safety Report 20573149 (Version 1)
Quarter: 2022Q1

REPORT INFORMATION
  Report Type: Spontaneous
  Country: US (occurrence: US)
  Receive Date: 20220309
  Receipt Date: 20220309
  Transmission Date: 20220423
  Serious: Yes (Other)
  Sender: FDA-Public Use
  Company Number: US-LUNDBECK-DKLU3044108

PATIENT
  Sex: Female

DRUGS (10)
  1. CITALOPRAM HYDROBROMIDE [Suspect]
     Active Substance: CITALOPRAM HYDROBROMIDE
     Indication: Exposure during pregnancy
     Dosage: UNK
     Route: 064
  2. CITALOPRAM HYDROBROMIDE [Suspect]
     Active Substance: CITALOPRAM HYDROBROMIDE
     Dosage: UNK
     Route: 063
  3. METHADONE [Suspect]
     Active Substance: METHADONE HYDROCHLORIDE
     Indication: Exposure during pregnancy
     Dosage: UNK
     Route: 064
  4. METHADONE [Suspect]
     Active Substance: METHADONE HYDROCHLORIDE
     Dosage: UNK
     Route: 063
  5. ONDANSETRON [Suspect]
     Active Substance: ONDANSETRON
     Indication: Exposure during pregnancy
     Dosage: UNK
     Route: 064
  6. ONDANSETRON [Suspect]
     Active Substance: ONDANSETRON
     Dosage: UNK
     Route: 063
  7. ALPRAZOLAM [Suspect]
     Active Substance: ALPRAZOLAM
     Indication: Exposure during pregnancy
     Dosage: UNK
     Route: 064
  8. ALPRAZOLAM [Suspect]
     Active Substance: ALPRAZOLAM
     Dosage: UNK
     Route: 063
  9. TRAMADOL [Suspect]
     Active Substance: TRAMADOL
     Indication: Exposure during pregnancy
     Dosage: UNK
     Route: 064
  10. TRAMADOL [Suspect]
     Active Substance: TRAMADOL
     Dosage: UNK
     Route: 063

REACTIONS (5)
  - Foetal growth restriction [Unknown]
  - Low birth weight baby [Unknown]
  - Withdrawal syndrome [Unknown]
  - Maternal exposure during breast feeding [Unknown]
  - Pregnancy [Unknown]
